FAERS Safety Report 4651695-9 (Version None)
Quarter: 2005Q2

REPORT INFORMATION
  Report Type: 
  Country: None (occurrence: None)
  Receive Date: 20050404
  Receipt Date: 20041129
  Transmission Date: 20051028
  Serious: No
  Sender: FDA-Public Use
  Company Number: USA041184885

PATIENT
  Age: 72 Year
  Sex: Male

DRUGS (3)
  1. CYMBALTA [Suspect]
     Dosage: 30 MG
     Dates: start: 20041122, end: 20041123
  2. DIGOXIN [Concomitant]
  3. ASPIRIN [Concomitant]

REACTIONS (2)
  - CONFUSIONAL STATE [None]
  - HALLUCINATION [None]
